APPROVED DRUG PRODUCT: MOMETASONE FUROATE
Active Ingredient: MOMETASONE FUROATE
Strength: 0.05MG/SPRAY
Dosage Form/Route: SPRAY, METERED;NASAL
Application: A215878 | Product #001 | TE Code: AB
Applicant: AUROBINDO PHARMA LTD
Approved: Mar 18, 2024 | RLD: No | RS: No | Type: RX